FAERS Safety Report 5327585-5 (Version None)
Quarter: 2007Q2

REPORT INFORMATION
  Report Type: 
  Country: None (occurrence: None)
  Receive Date: 20070517
  Receipt Date: 20070122
  Transmission Date: 20071010
  Serious: Yes (Hospitalization)
  Sender: FDA-Public Use
  Company Number: US-JNJFOC-20070103278

PATIENT
  Age: 2 Year
  Sex: Male

DRUGS (5)
  1. TRAMADOL IR [Suspect]
     Indication: ACCIDENTAL EXPOSURE
  2. ATENOLOL [Suspect]
     Indication: ACCIDENTAL EXPOSURE
     Route: 065
  3. POTASSIUM CHLORIDE [Suspect]
     Indication: ACCIDENTAL EXPOSURE
     Route: 065
  4. PROPRANOLOL [Suspect]
     Indication: ACCIDENTAL EXPOSURE
     Route: 065
  5. OTHER HEAVY METAL [Suspect]
     Indication: ACCIDENTAL EXPOSURE
     Route: 065

REACTIONS (1)
  - ACCIDENTAL DRUG INTAKE BY CHILD [None]
